FAERS Safety Report 20074451 (Version 1)
Quarter: 2021Q4

REPORT INFORMATION
  Report Type: Spontaneous
  Country: US (occurrence: None)
  Receive Date: 20211115
  Receipt Date: 20211115
  Transmission Date: 20220303
  Serious: Yes (Hospitalization)
  Sender: FDA-Public Use
  Company Number: None

PATIENT
  Age: 49 Year
  Sex: Female
  Weight: 76.5 kg

DRUGS (1)
  1. NP THYROID [Suspect]
     Active Substance: LEVOTHYROXINE\LIOTHYRONINE
     Indication: Hypothyroidism
     Dosage: OTHER FREQUENCY : 1 + 1/2=5 DAYS1=2;?
     Route: 048
     Dates: start: 20211007

REACTIONS (23)
  - Product colour issue [None]
  - Product taste abnormal [None]
  - Product physical issue [None]
  - Product odour abnormal [None]
  - Illness [None]
  - Skin odour abnormal [None]
  - Product formulation issue [None]
  - Allergic reaction to excipient [None]
  - Fatigue [None]
  - Feeling abnormal [None]
  - Hyperhidrosis [None]
  - Anxiety [None]
  - Heart rate increased [None]
  - Vision blurred [None]
  - Dry skin [None]
  - Dizziness [None]
  - Pain [None]
  - Mood swings [None]
  - Nausea [None]
  - Headache [None]
  - Dysphagia [None]
  - Product complaint [None]
  - Product use complaint [None]
